FAERS Safety Report 17280045 (Version 1)
Quarter: 2020Q1

REPORT INFORMATION
  Report Type: Spontaneous
  Country: DK (occurrence: DK)
  Receive Date: 20200117
  Receipt Date: 20200117
  Transmission Date: 20200409
  Serious: Yes (Hospitalization)
  Sender: FDA-Public Use
  Company Number: DK-TEVA-2020-DK-1168023

PATIENT
  Age: 28 Year
  Sex: Male

DRUGS (2)
  1. EMTHEXATE [Suspect]
     Active Substance: METHOTREXATE
     Indication: POLYCHONDRITIS
     Dosage: 20 MG
     Route: 048
     Dates: start: 20181217, end: 20190120
  2. PREDNISOLON ^ACTAVIS^ [Concomitant]
     Active Substance: PREDNISOLONE
     Indication: POLYCHONDRITIS
     Dosage: 97.5 MG
     Route: 048
     Dates: start: 20181217, end: 20190120

REACTIONS (9)
  - Nausea [Not Recovered/Not Resolved]
  - Haematemesis [Unknown]
  - Colitis [Unknown]
  - Gastrointestinal tube insertion [Unknown]
  - Urinary retention [Not Recovered/Not Resolved]
  - Weight decreased [Unknown]
  - Abdominal pain [Not Recovered/Not Resolved]
  - Bladder catheterisation [Not Recovered/Not Resolved]
  - Vomiting [Not Recovered/Not Resolved]

NARRATIVE: CASE EVENT DATE: 2019
